FAERS Safety Report 12265784 (Version 3)
Quarter: 2017Q4

REPORT INFORMATION
  Report Type: Spontaneous
  Country: CA (occurrence: CA)
  Receive Date: 20160413
  Receipt Date: 20171208
  Transmission Date: 20180320
  Serious: Yes (Other)
  Sender: FDA-Public Use
  Company Number: CA-MERZ NORTH AMERICA, INC.-16MRZ-00229

PATIENT
  Age: 54 Year
  Sex: Female

DRUGS (9)
  1. XEOMIN [Suspect]
     Active Substance: INCOBOTULINUMTOXINA
     Indication: PRODUCT USED FOR UNKNOWN INDICATION
  2. PREDNISONE. [Concomitant]
     Active Substance: PREDNISONE
  3. CITALOPRAM [Concomitant]
     Active Substance: CITALOPRAM HYDROBROMIDE
  4. TRAMACET [Concomitant]
     Active Substance: ACETAMINOPHEN\TRAMADOL
  5. SIMPONI [Suspect]
     Active Substance: GOLIMUMAB
     Indication: RHEUMATOID ARTHRITIS
     Route: 058
     Dates: start: 201004
  6. LYRICA [Concomitant]
     Active Substance: PREGABALIN
  7. SYNTHROID [Concomitant]
     Active Substance: LEVOTHYROXINE SODIUM
  8. ZOPICLONE [Concomitant]
     Active Substance: ZOPICLONE
  9. ADVAIR HFA [Concomitant]
     Active Substance: FLUTICASONE PROPIONATE\SALMETEROL XINAFOATE

REACTIONS (3)
  - Central nervous system lesion [Recovering/Resolving]
  - Facial spasm [Recovering/Resolving]
  - Skin tightness [Recovering/Resolving]

NARRATIVE: CASE EVENT DATE: 201504
